FAERS Safety Report 17224667 (Version 1)
Quarter: 2020Q1

REPORT INFORMATION
  Report Type: Spontaneous
  Country: DE (occurrence: DE)
  Receive Date: 20200102
  Receipt Date: 20200102
  Transmission Date: 20200409
  Serious: Yes (Hospitalization, Disabling, Other)
  Sender: FDA-Public Use
  Company Number: DE-MYLANLABS-2019M1131402

PATIENT
  Age: 56 Year
  Sex: Female
  Weight: 60 kg

DRUGS (7)
  1. IRINOTECAN [Suspect]
     Active Substance: IRINOTECAN
     Indication: COLORECTAL CANCER
     Dosage: 300 MG, UNK
     Route: 042
     Dates: start: 20190710
  2. ZALTRAP [Suspect]
     Active Substance: ZIV-AFLIBERCEPT
     Indication: COLORECTAL CANCER
     Dosage: 250 MG, UNK
     Route: 042
     Dates: start: 20190710
  3. FOLFOX [Concomitant]
     Active Substance: FLUOROURACIL\LEUCOVORIN CALCIUM\OXALIPLATIN
     Dosage: UNK, UNK
  4. GRANISETRON [Concomitant]
     Active Substance: GRANISETRON
     Indication: VOMITING
     Dosage: 1 MG, UNK
     Route: 042
     Dates: start: 20190710
  5. FLUOROURACIL. [Suspect]
     Active Substance: FLUOROURACIL
     Indication: COLORECTAL CANCER
     Dosage: 1 BOLUS 650 MG-3950 MG/46 HOURS
     Route: 042
     Dates: start: 20190710
  6. BEVACIZUMAB. [Concomitant]
     Active Substance: BEVACIZUMAB
     Dosage: UNK, UNK
  7. FOLIC ACID. [Concomitant]
     Active Substance: FOLIC ACID
     Dosage: 650 MG, UNK
     Route: 042
     Dates: start: 20190710

REACTIONS (2)
  - Stomatitis [Recovering/Resolving]
  - Leukopenia [Unknown]

NARRATIVE: CASE EVENT DATE: 20190718
